FAERS Safety Report 23648946 (Version 1)
Quarter: 2024Q1

REPORT INFORMATION
  Report Type: Spontaneous
  Country: US (occurrence: None)
  Receive Date: 20240318
  Receipt Date: 20240318
  Transmission Date: 20240410
  Serious: Yes (Death)
  Sender: FDA-Public Use
  Company Number: None

PATIENT
  Age: 83 Year
  Sex: Female
  Weight: 49.9 kg

DRUGS (6)
  1. CREON [Suspect]
     Active Substance: PANCRELIPASE AMYLASE\PANCRELIPASE LIPASE\PANCRELIPASE PROTEASE
     Indication: Abdominal pain upper
     Dosage: FREQUENCY : 3 TIMES A DAY;?
     Route: 048
     Dates: start: 20220718
  2. PAROXETINE [Concomitant]
     Active Substance: PAROXETINE
     Dates: start: 20220718
  3. DICLOFENAC [Concomitant]
     Active Substance: DICLOFENAC
     Dates: start: 20220728
  4. TOPIRAMATE [Concomitant]
     Active Substance: TOPIRAMATE
     Dates: start: 20220718
  5. NORTRIPTYLINE [Concomitant]
     Active Substance: NORTRIPTYLINE
     Dates: start: 20221108
  6. EZETIMIBE [Concomitant]
     Active Substance: EZETIMIBE
     Dates: start: 20220503

REACTIONS (1)
  - Death [None]

NARRATIVE: CASE EVENT DATE: 20240301
